FAERS Safety Report 10423050 (Version 1)
Quarter: 2014Q3

REPORT INFORMATION
  Report Type: Spontaneous
  Country: US (occurrence: None)
  Receive Date: 20140722
  Receipt Date: 20140722
  Transmission Date: 20150326
  Serious: No
  Sender: FDA-Public Use
  Company Number: 163-10004-14054128

PATIENT
  Age: 67 Year
  Sex: Male
  Weight: 95.71 kg

DRUGS (14)
  1. LEVOTHYROXINE (LEVOTHYROXINE) (UNKNOWN) [Concomitant]
  2. ZOLPIDEM [Concomitant]
     Active Substance: ZOLPIDEM\ZOLPIDEM TARTRATE
  3. ASPRIN [Concomitant]
     Active Substance: ASPIRIN
  4. FOLIC ACID (FOLIC ACID) (UNKNOWN) [Concomitant]
  5. TRAMADOL (TRAMADOL) (UNKNOWN) [Concomitant]
  6. ATENOLOL (ATENOLOL) UNKNOWN [Concomitant]
  7. CEFOMINE (CEFPODOXIME PROXETIL) (UNKNOWN) [Concomitant]
  8. IPRATROPIUM NS (IPRATROPIUM) (UNKNOWN) [Concomitant]
  9. OTEZLA [Suspect]
     Active Substance: APREMILAST
     Indication: PSORIATIC ARTHROPATHY
     Dosage: 30 MG, 1 IN 1 D, PO
     Route: 048
     Dates: start: 201405
  10. VITAMIN D (ERGOCALCIFEROL) (UNKNOWN) [Concomitant]
  11. MULTIVITAMINS (MULTIVITAMINS) (UNKNOWN) [Concomitant]
  12. NITROGLYCERIN (GLYCERYL TRINITRATE) (UNKNOWN) [Concomitant]
  13. LOVASTATIN (LOVASTATIN) (UNKNOWN) [Concomitant]
  14. FLUTICASONE (FLUTICASONE) (UNKNOWN) [Concomitant]

REACTIONS (2)
  - Headache [None]
  - Diarrhoea [None]

NARRATIVE: CASE EVENT DATE: 201405
